FAERS Safety Report 5920265-4 (Version None)
Quarter: 2008Q4

REPORT INFORMATION
  Report Type: 
  Country: None (occurrence: None)
  Receive Date: 20081016
  Receipt Date: 20081006
  Transmission Date: 20090506
  Serious: Yes (Other)
  Sender: FDA-Public Use
  Company Number: JO-PURDUE-USA_2008_0035241

PATIENT
  Age: 4 Day
  Sex: Female
  Weight: 1 kg

DRUGS (1)
  1. MORPHINE SULFATE [Suspect]
     Indication: PAIN MANAGEMENT
     Dosage: 20 MCG/KG, Q1H
     Route: 042

REACTIONS (2)
  - HYDRONEPHROSIS [None]
  - RENAL IMPAIRMENT NEONATAL [None]
